FAERS Safety Report 6992303-1 (Version None)
Quarter: 2010Q3

REPORT INFORMATION
  Report Type: 
  Country: None (occurrence: None)
  Receive Date: 20100917
  Receipt Date: 20100908
  Transmission Date: 20110219
  Serious: Yes (Other)
  Sender: FDA-Public Use
  Company Number: JP-ASTRAZENECA-2010SE43020

PATIENT
  Age: 59 Year
  Sex: Female

DRUGS (1)
  1. IRESSA [Suspect]
     Indication: LUNG ADENOCARCINOMA
     Dosage: SUSPENDED TWICE, THEREAFTER, ALTERNATE-DAY ADMINISTRATION
     Route: 048
     Dates: start: 20080226, end: 20080714

REACTIONS (1)
  - HEPATIC FUNCTION ABNORMAL [None]
